FAERS Safety Report 15065303 (Version 1)
Quarter: 2018Q2

REPORT INFORMATION
  Report Type: Report from Study
  Country: US (occurrence: US)
  Receive Date: 20180626
  Receipt Date: 20180626
  Transmission Date: 20180711
  Serious: No
  Sender: FDA-Public Use
  Company Number: PHEH2018US025694

PATIENT
  Age: 55 Year
  Weight: 74.84 kg

DRUGS (1)
  1. SANDOSTATIN LAR DEPOT [Suspect]
     Active Substance: OCTREOTIDE ACETATE
     Indication: PRODUCT USED FOR UNKNOWN INDICATION
     Dosage: Q2W (EVERY 2 WEEKS)
     Route: 065

REACTIONS (1)
  - Inappropriate schedule of drug administration [Unknown]
